FAERS Safety Report 5771439-7 (Version None)
Quarter: 2008Q2

REPORT INFORMATION
  Report Type: 
  Country: None (occurrence: None)
  Receive Date: 20080610
  Receipt Date: 20080530
  Transmission Date: 20081010
  Serious: Yes (Other)
  Sender: FDA-Public Use
  Company Number: 48923

PATIENT
  Sex: Male
  Weight: 127.0072 kg

DRUGS (2)
  1. AMIODARONE HCL [Suspect]
     Indication: HEART RATE INCREASED
     Dates: start: 20080102, end: 20080107
  2. COUMADIN [Concomitant]

REACTIONS (2)
  - PERICARDITIS [None]
  - PHARMACEUTICAL PRODUCT COMPLAINT [None]
